FAERS Safety Report 8621845-8 (Version None)
Quarter: 2012Q3

REPORT INFORMATION
  Report Type: 
  Country: None (occurrence: None)
  Receive Date: 20120822
  Receipt Date: 20120822
  Transmission Date: 20120928
  Serious: Yes (Life-Threatening, Hospitalization)
  Sender: FDA-Public Use
  Company Number: None

PATIENT
  Age: 66 Year
  Sex: Male

DRUGS (2)
  1. SUCCINYLCHOLINE CHLORIDE [Suspect]
     Indication: GENERAL ANAESTHESIA
     Dosage: 120 MG ONCE
     Dates: start: 20120815, end: 20120815
  2. SUCCINYLCHOLINE CHLORIDE [Suspect]
     Indication: ENDOTRACHEAL INTUBATION
     Dosage: 120 MG ONCE
     Dates: start: 20120815, end: 20120815

REACTIONS (5)
  - HYPERKALAEMIA [None]
  - ELECTROCARDIOGRAM T WAVE PEAKED [None]
  - ELECTROCARDIOGRAM QRS COMPLEX PROLONGED [None]
  - PALPITATIONS [None]
  - ELECTROCARDIOGRAM ST SEGMENT ELEVATION [None]
